FAERS Safety Report 17184409 (Version 3)
Quarter: 2020Q1

REPORT INFORMATION
  Report Type: Spontaneous
  Country: US (occurrence: US)
  Receive Date: 20191220
  Receipt Date: 20200122
  Transmission Date: 20200409
  Serious: No
  Sender: FDA-Public Use
  Company Number: US-PFIZER INC-2019280058

PATIENT
  Age: 72 Year
  Sex: Female
  Weight: 61.23 kg

DRUGS (2)
  1. RELPAX [Suspect]
     Active Substance: ELETRIPTAN HYDROBROMIDE
     Indication: MIGRAINE
     Dosage: 40 MG, AS NEEDED (MAY REPEAT IN 2 HOURS IF NOT IMPROVED. MAX DAILY DOSE IS 80MG/24HR)
     Route: 048
  2. RELPAX [Suspect]
     Active Substance: ELETRIPTAN HYDROBROMIDE
     Dosage: 40 MG, ONCE DAILY AS NEEDED. MAY REPEAT IN 2 HOURS IF NOT IMPROVED. MAX: 80MG/24HR
     Route: 048
     Dates: start: 20200109

REACTIONS (1)
  - Dysphonia [Unknown]
